APPROVED DRUG PRODUCT: DEFERASIROX
Active Ingredient: DEFERASIROX
Strength: 90MG
Dosage Form/Route: TABLET;ORAL
Application: A211660 | Product #001 | TE Code: AB
Applicant: JUBILANT GENERICS LTD
Approved: Apr 11, 2025 | RLD: No | RS: No | Type: RX